FAERS Safety Report 8306278-6 (Version None)
Quarter: 2012Q2

REPORT INFORMATION
  Report Type: 
  Country: None (occurrence: None)
  Receive Date: 20120423
  Receipt Date: 20120412
  Transmission Date: 20120825
  Serious: No
  Sender: FDA-Public Use
  Company Number: US-PFIZER INC-2012091801

PATIENT
  Sex: Male
  Weight: 97.506 kg

DRUGS (5)
  1. AMOXICILLIN [Concomitant]
     Dosage: UNK
  2. EFFEXOR XR [Suspect]
     Indication: ANXIETY
     Dosage: 37.5 MG, 1X/DAY
     Route: 048
     Dates: start: 20111001, end: 20111001
  3. FLONASE [Concomitant]
     Dosage: UNK
  4. EFFEXOR XR [Suspect]
     Indication: DEPRESSION
     Dosage: 75 MG, 1X/DAY
     Route: 048
     Dates: start: 20111001
  5. CLARITIN-D [Concomitant]
     Dosage: UNK

REACTIONS (7)
  - IRRITABILITY [None]
  - HYPERHIDROSIS [None]
  - SEXUAL DYSFUNCTION [None]
  - NAUSEA [None]
  - PARAESTHESIA [None]
  - RESTLESS LEGS SYNDROME [None]
  - ANGER [None]
